FAERS Safety Report 7482292-8 (Version None)
Quarter: 2011Q2

REPORT INFORMATION
  Report Type: 
  Country: None (occurrence: None)
  Receive Date: 20110516
  Receipt Date: 20110506
  Transmission Date: 20111010
  Serious: No
  Sender: FDA-Public Use
  Company Number: US-PFIZER INC-2011097973

PATIENT
  Sex: Female
  Weight: 47.2 kg

DRUGS (4)
  1. PROGESTIN INJ [Suspect]
     Indication: HOT FLUSH
  2. PREMARIN [Suspect]
     Dosage: 0.45 MG, 1X/DAY
     Route: 048
  3. PREMARIN [Suspect]
     Indication: MENOPAUSE
     Dosage: UNK
  4. TIMOLOL [Concomitant]
     Dosage: UNK

REACTIONS (1)
  - DRUG INEFFECTIVE [None]
